FAERS Safety Report 16003640 (Version 6)
Quarter: 2021Q3

REPORT INFORMATION
  Report Type: Report from Study
  Country: JP (occurrence: JP)
  Receive Date: 20190226
  Receipt Date: 20210701
  Transmission Date: 20211014
  Serious: Yes (Death, Hospitalization, Other)
  Sender: FDA-Public Use
  Company Number: JP-ALEXION PHARMACEUTICALS INC.-A201902456

PATIENT
  Age: 2 Year
  Sex: Male
  Weight: 6.8 kg

DRUGS (63)
  1. SYNAGIS [Concomitant]
     Active Substance: PALIVIZUMAB
     Dosage: 150 MG, SINGLE
     Route: 030
     Dates: start: 20190307, end: 20190307
  2. HEPARIN [Concomitant]
     Active Substance: HEPARIN SODIUM
     Indication: PROPHYLAXIS
     Dosage: 0.2 UT, DAILY
     Route: 041
     Dates: start: 20190501, end: 20190501
  3. HEPARIN [Concomitant]
     Active Substance: HEPARIN SODIUM
     Dosage: 0.25 UT, DAILY
     Route: 041
     Dates: start: 20190506, end: 20190508
  4. HEPARIN [Concomitant]
     Active Substance: HEPARIN SODIUM
     Dosage: 0.25 UT, DAILY
     Route: 041
     Dates: start: 20190523, end: 20190531
  5. HEPARIN [Concomitant]
     Active Substance: HEPARIN SODIUM
     Dosage: 0.05 UT, DAILY
     Route: 041
     Dates: start: 20190601, end: 20190606
  6. ISOZOL [Concomitant]
     Active Substance: THIAMYLAL SODIUM
     Indication: PROPHYLAXIS
     Dosage: 1 UT, SINGLE
     Route: 042
     Dates: start: 20190611, end: 20190611
  7. BIO?THREE [Concomitant]
     Active Substance: HERBALS
     Dosage: 0.2 G, PC? AFTER MEALS
     Route: 065
     Dates: start: 20190909, end: 20190912
  8. SEISHOKU [Concomitant]
     Active Substance: SODIUM CHLORIDE
     Indication: PRODUCT USED FOR UNKNOWN INDICATION
     Dosage: UNK, DAILY
     Route: 065
     Dates: start: 20190503, end: 20190905
  9. HYALEIN [Concomitant]
     Active Substance: HYALURONATE SODIUM
     Indication: PROPHYLAXIS
     Dosage: UNK, DAILY
     Route: 047
     Dates: start: 20190518, end: 20190518
  10. HEPAFLUSH [Concomitant]
     Active Substance: HEPARIN SODIUM
     Indication: PRODUCT USED FOR UNKNOWN INDICATION
     Dosage: 1 UT, DAILY
     Route: 042
     Dates: start: 20190508, end: 20190508
  11. BIO?THREE [Concomitant]
     Active Substance: HERBALS
     Dosage: 0.4 G, PC? AFTER MEALS
     Route: 065
     Dates: start: 20190908, end: 20190908
  12. ONON [Concomitant]
     Active Substance: PRANLUKAST
     Dosage: 60 MG, BID
     Route: 065
     Dates: start: 20190814
  13. SYNAGIS [Concomitant]
     Active Substance: PALIVIZUMAB
     Indication: PROPHYLAXIS
     Dosage: 150 MG, SINGLE
     Route: 030
     Dates: start: 20190207, end: 20190207
  14. TULOBUTEROL [Concomitant]
     Active Substance: TULOBUTEROL
     Indication: PRODUCT USED FOR UNKNOWN INDICATION
     Dosage: 1 SHEET QD
     Dates: start: 20190703, end: 20190711
  15. TRICLORYL [Concomitant]
     Active Substance: TRICLOFOS SODIUM
     Indication: PROPHYLAXIS
     Dosage: 7 ML, SLEEPLESS NIGHT
     Route: 048
     Dates: start: 20190511
  16. STRENSIQ [Suspect]
     Active Substance: ASFOTASE ALFA
     Indication: HYPOPHOSPHATASIA
     Dosage: 1 MG/KG, SIX TIMES/WEEK
     Route: 058
     Dates: start: 20170113, end: 20170113
  17. STRENSIQ [Suspect]
     Active Substance: ASFOTASE ALFA
     Dosage: 2 MG/KG, TIW
     Route: 058
     Dates: start: 20170116, end: 20180214
  18. CEFOTAXIME [Suspect]
     Active Substance: CEFOTAXIME SODIUM
     Dosage: 1.5 UT, QD
     Route: 042
     Dates: start: 20190520, end: 20190527
  19. ONON [Concomitant]
     Active Substance: PRANLUKAST
     Dosage: 60 MG, BID
     Route: 065
     Dates: start: 20190702, end: 20190715
  20. ONON [Concomitant]
     Active Substance: PRANLUKAST
     Dosage: 60 MG, BID
     Route: 065
     Dates: start: 20190902, end: 20190910
  21. FUROSEMIDE. [Concomitant]
     Active Substance: FUROSEMIDE
     Dosage: TOTAL 4 MG, PC? AFTER MEALS
     Route: 048
     Dates: start: 20190502, end: 20190506
  22. HEPAFLUSH [Concomitant]
     Active Substance: HEPARIN SODIUM
     Dosage: 1 UT, DAILY
     Route: 042
     Dates: start: 20190602, end: 20190602
  23. KENEI G [Concomitant]
     Active Substance: GLYCERIN
     Indication: CONSTIPATION
     Dosage: UNK, PRN
     Route: 054
     Dates: start: 20190814
  24. FAMOTIDINE. [Concomitant]
     Active Substance: FAMOTIDINE
     Indication: PROPHYLAXIS
     Dosage: 12 MG, QD
     Route: 042
     Dates: start: 20190426, end: 20190426
  25. STRENSIQ [Suspect]
     Active Substance: ASFOTASE ALFA
     Dosage: 3 MG/KG, TIW
     Route: 058
     Dates: start: 20190307, end: 20191014
  26. CEFOTAXIME [Suspect]
     Active Substance: CEFOTAXIME SODIUM
     Dosage: 1.8 UT, QD
     Route: 042
     Dates: start: 20190902, end: 20190906
  27. ONON [Concomitant]
     Active Substance: PRANLUKAST
     Dosage: 30 MG, BID
     Route: 065
     Dates: start: 20190716
  28. ONON [Concomitant]
     Active Substance: PRANLUKAST
     Dosage: 30 MG, BID
     Route: 065
     Dates: start: 20190831, end: 20190901
  29. ONON [Concomitant]
     Active Substance: PRANLUKAST
     Dosage: 30 MG, BID
     Route: 065
     Dates: start: 20190911, end: 20190919
  30. ONON [Concomitant]
     Active Substance: PRANLUKAST
     Dosage: 60 MG, BID
     Route: 065
     Dates: start: 20191010, end: 20191014
  31. LEVOFLOXACIN. [Concomitant]
     Active Substance: LEVOFLOXACIN
     Indication: PROPHYLAXIS
     Dosage: UNK, DAILY
     Route: 047
     Dates: start: 20190125, end: 20190125
  32. ELENTAL?P [Concomitant]
     Active Substance: AMINO ACIDS\CARBOHYDRATES\MINERALS\SOYBEAN OIL\VITAMINS
     Dosage: 20 G, QID
     Route: 048
     Dates: start: 20190508, end: 20190514
  33. FUROSEMIDE. [Concomitant]
     Active Substance: FUROSEMIDE
     Indication: PROPHYLAXIS
     Dosage: TOTAL 8 MG, PC? AFTER MEALS
     Route: 048
     Dates: start: 20190428, end: 20190501
  34. HEPARIN [Concomitant]
     Active Substance: HEPARIN SODIUM
     Dosage: 0.25 UT, DAILY
     Route: 041
     Dates: start: 20190513, end: 20190520
  35. ATARAX?P                           /00058402/ [Concomitant]
     Active Substance: HYDROXYZINE HYDROCHLORIDE
     Indication: PROPHYLAXIS
     Dosage: 0.25 UT, SINGLE
     Route: 042
     Dates: start: 20190511, end: 20190511
  36. FAMOTIDINE. [Concomitant]
     Active Substance: FAMOTIDINE
     Dosage: 8 MG, QD
     Route: 042
     Dates: start: 20190428, end: 20190504
  37. STRENSIQ [Suspect]
     Active Substance: ASFOTASE ALFA
     Dosage: 1 MG/KG, SIX TIMES/WEEK
     Route: 058
     Dates: start: 20180216, end: 20180905
  38. STRENSIQ [Suspect]
     Active Substance: ASFOTASE ALFA
     Dosage: 2 MG/KG, TIW
     Route: 058
     Dates: start: 20180906, end: 20190306
  39. CEFOTAXIME [Suspect]
     Active Substance: CEFOTAXIME SODIUM
     Indication: PNEUMONIA ASPIRATION
     Dosage: 1 UT, QD
     Route: 042
     Dates: start: 20190519, end: 20190519
  40. ONON [Concomitant]
     Active Substance: PRANLUKAST
     Dosage: 60 MG, BID
     Route: 065
     Dates: start: 20190920
  41. FAMOTIDINE. [Concomitant]
     Active Substance: FAMOTIDINE
     Indication: PROPHYLAXIS
     Dosage: 1 DF, QHS
     Route: 048
     Dates: start: 20190426, end: 20190427
  42. SPIRONOLACTONE. [Concomitant]
     Active Substance: SPIRONOLACTONE
     Indication: PRODUCT USED FOR UNKNOWN INDICATION
     Dosage: TOTAL 0.32 DF, PC? AFTER MEALS
     Route: 065
     Dates: start: 20190428, end: 20190501
  43. HEPARIN [Concomitant]
     Active Substance: HEPARIN SODIUM
     Dosage: 0.2 UT, DAILY
     Route: 041
     Dates: start: 20190503, end: 20190503
  44. HEPARIN [Concomitant]
     Active Substance: HEPARIN SODIUM
     Dosage: 0.15 UT, DAILY
     Route: 041
     Dates: start: 20190512, end: 20190512
  45. HEPARIN [Concomitant]
     Active Substance: HEPARIN SODIUM
     Dosage: 0.1 UT, DAILY
     Route: 041
     Dates: start: 20190521, end: 20190522
  46. FAMOTIDINE. [Concomitant]
     Active Substance: FAMOTIDINE
     Dosage: 16 MG, QD
     Route: 042
     Dates: start: 20190427, end: 20190427
  47. FAMOTIDINE. [Concomitant]
     Active Substance: FAMOTIDINE
     Dosage: 8 MG, QD
     Route: 042
     Dates: start: 20190509, end: 20190526
  48. RACOL [Concomitant]
     Active Substance: AMINO ACIDS\DEXTROSE\ELECTROLYTES NOS
     Dosage: 100 ML, Q4H
     Route: 065
     Dates: start: 20190514, end: 20190611
  49. HEPARINOID [Concomitant]
     Active Substance: CHONDROITIN SULFATE (BOVINE)
     Indication: PROPHYLAXIS
     Dosage: 1 ? SEVERAL TIMES, THE RIGHT AMOUNT
     Route: 003
     Dates: start: 20190602
  50. ONON [Concomitant]
     Active Substance: PRANLUKAST
     Dosage: 30 MG, BID
     Route: 065
     Dates: start: 20190930, end: 20191009
  51. SPIRONOLACTONE. [Concomitant]
     Active Substance: SPIRONOLACTONE
     Dosage: 0.16 DF, PC? AFTER MEALS
     Route: 065
     Dates: start: 20190502, end: 20190506
  52. BIO?THREE [Concomitant]
     Active Substance: HERBALS
     Indication: PROPHYLAXIS
     Dosage: 0.2 G, PC? AFTER MEALS
     Route: 065
     Dates: start: 20190906, end: 20190907
  53. RACOL [Concomitant]
     Active Substance: AMINO ACIDS\DEXTROSE\ELECTROLYTES NOS
     Indication: PROPHYLAXIS
     Dosage: 100 ML, Q4H
     Route: 065
     Dates: start: 20190505, end: 20190511
  54. RACOL [Concomitant]
     Active Substance: AMINO ACIDS\DEXTROSE\ELECTROLYTES NOS
     Dosage: 200 ML, Q4H
     Route: 065
     Dates: start: 20190612
  55. ONON [Concomitant]
     Active Substance: PRANLUKAST
     Indication: PRODUCT USED FOR UNKNOWN INDICATION
     Dosage: 30 MG, BID
     Route: 065
     Dates: start: 20190122, end: 20190701
  56. ELENTAL?P [Concomitant]
     Active Substance: AMINO ACIDS\CARBOHYDRATES\MINERALS\SOYBEAN OIL\VITAMINS
     Indication: PROPHYLAXIS
     Dosage: 20 G, QID
     Route: 048
     Dates: start: 20190125, end: 20190129
  57. PROPETO [Concomitant]
     Active Substance: PETROLATUM
     Indication: PROPHYLAXIS
     Dosage: UNK, ONCE OR FEW TIMES A DAY
     Route: 003
     Dates: start: 20190420
  58. HEPARIN [Concomitant]
     Active Substance: HEPARIN SODIUM
     Dosage: 0.1 UT, DAILY
     Route: 041
     Dates: start: 20190502, end: 20190502
  59. HEPARIN [Concomitant]
     Active Substance: HEPARIN SODIUM
     Dosage: 0.1 UT, DAILY
     Route: 041
     Dates: start: 20190504, end: 20190504
  60. HEPARIN [Concomitant]
     Active Substance: HEPARIN SODIUM
     Dosage: 0.15 UT, DAILY
     Route: 041
     Dates: start: 20190505, end: 20190505
  61. HEPARIN [Concomitant]
     Active Substance: HEPARIN SODIUM
     Dosage: 0.1 UT, DAILY
     Route: 041
     Dates: start: 20190509, end: 20190511
  62. HEPAFLUSH [Concomitant]
     Active Substance: HEPARIN SODIUM
     Dosage: 1 UT, DAILY
     Route: 042
     Dates: start: 20190605, end: 20190605
  63. ESCRE [Concomitant]
     Active Substance: CHLORAL HYDRATE
     Indication: PROPHYLAXIS
     Dosage: 1 UT, SLEEPLESS NIGHT
     Route: 054
     Dates: start: 20190511

REACTIONS (8)
  - Pneumonia viral [Recovered/Resolved]
  - Acute respiratory failure [Fatal]
  - Pneumonia [Recovered/Resolved]
  - Cardio-respiratory arrest [Fatal]
  - Influenza [Recovered/Resolved]
  - Asthma [Recovered/Resolved]
  - Dermatitis diaper [Recovered/Resolved]
  - Pneumonia aspiration [Recovered/Resolved]

NARRATIVE: CASE EVENT DATE: 20190122
